FAERS Safety Report 22193790 (Version 6)
Quarter: 2024Q3

REPORT INFORMATION
  Report Type: Spontaneous
  Country: CA (occurrence: CA)
  Receive Date: 20230410
  Receipt Date: 20240823
  Transmission Date: 20241016
  Serious: Yes (Other)
  Sender: CELLTRION
  Company Number: CA-CELLTRION INC.-2022CA005429

PATIENT

DRUGS (21)
  1. INFLECTRA [Suspect]
     Active Substance: INFLIXIMAB-DYYB
     Indication: Polyarthritis
     Dosage: 10 MG/KG, EVERY 6 WEEKS
     Route: 042
     Dates: start: 20220427
  2. INFLECTRA [Suspect]
     Active Substance: INFLIXIMAB-DYYB
     Indication: Rheumatoid arthritis
     Dosage: 1115 MG (SUPPOSED TO RECEIVE 10 MG/KG)
     Route: 042
     Dates: start: 20220608
  3. INFLECTRA [Suspect]
     Active Substance: INFLIXIMAB-DYYB
     Dosage: 1200 MG (SUPPOSED TO RECEIVE 10 MG/KG)
     Route: 042
     Dates: start: 20220720
  4. INFLECTRA [Suspect]
     Active Substance: INFLIXIMAB-DYYB
     Dosage: 10 MG/KG, EVERY 6 WEEKS
     Route: 042
     Dates: start: 20221019
  5. INFLECTRA [Suspect]
     Active Substance: INFLIXIMAB-DYYB
     Dosage: 10 MG/KG, EVERY 6 WEEKS
     Route: 042
     Dates: start: 20221129
  6. INFLECTRA [Suspect]
     Active Substance: INFLIXIMAB-DYYB
     Dosage: 10 MG/KG, EVERY 6 WEEKS
     Route: 042
     Dates: start: 20230111
  7. INFLECTRA [Suspect]
     Active Substance: INFLIXIMAB-DYYB
     Dosage: (10 MG/KG), EVERY 6 WEEKS
     Route: 042
     Dates: start: 20230222
  8. INFLECTRA [Suspect]
     Active Substance: INFLIXIMAB-DYYB
     Dosage: (10 MG/KG), EVERY 6 WEEKS
     Route: 042
     Dates: start: 20230412
  9. INFLECTRA [Suspect]
     Active Substance: INFLIXIMAB-DYYB
     Dosage: 10 MG/KG, EVERY 6 WEEKS
     Route: 042
     Dates: start: 20230823
  10. INFLECTRA [Suspect]
     Active Substance: INFLIXIMAB-DYYB
     Dosage: 10 MG/KG, EVERY 6 WEEKS
     Route: 042
     Dates: start: 20230823
  11. INFLECTRA [Suspect]
     Active Substance: INFLIXIMAB-DYYB
     Dosage: 10 MG/KG, EVERY 6 WEEKS
     Route: 042
     Dates: start: 20230823
  12. INFLECTRA [Suspect]
     Active Substance: INFLIXIMAB-DYYB
     Dosage: 10 MG/KG, EVERY 6 WEEKS
     Route: 042
     Dates: start: 20230823
  13. INFLECTRA [Suspect]
     Active Substance: INFLIXIMAB-DYYB
     Dosage: 10 MG/KG, EVERY 6 WEEKS
     Route: 042
     Dates: start: 20240206
  14. INFLECTRA [Suspect]
     Active Substance: INFLIXIMAB-DYYB
     Dosage: 10 MG/KG, EVERY 6 WEEKS
     Route: 042
     Dates: start: 20240206
  15. INFLECTRA [Suspect]
     Active Substance: INFLIXIMAB-DYYB
     Dosage: 1040 MG, (10MG/KG), EVERY 6 WEEKS
     Route: 042
     Dates: start: 20240320
  16. INFLECTRA [Suspect]
     Active Substance: INFLIXIMAB-DYYB
     Dosage: 1040 MG, (10MG/KG), EVERY 6 WEEKS
     Route: 042
     Dates: start: 20240430
  17. INFLECTRA [Suspect]
     Active Substance: INFLIXIMAB-DYYB
     Dosage: 1040 MG, 9 WEEKS AND 2 DAYS (10MG/KG, EVERY 6 WEEKS)
     Route: 042
     Dates: start: 20240704
  18. INFLECTRA [Suspect]
     Active Substance: INFLIXIMAB-DYYB
     Dosage: 1010 MG, 6 WEEKS (10MG/KG, EVERY 6 WEEK)
     Route: 042
     Dates: start: 20240814
  19. GLUMETZA [Concomitant]
     Active Substance: METFORMIN HYDROCHLORIDE
     Dosage: 1 DF
  20. HYDROXYCHLOROQUINE [Concomitant]
     Active Substance: HYDROXYCHLOROQUINE
     Dosage: 1 DF
  21. VENLAFAXINE [Concomitant]
     Active Substance: VENLAFAXINE HYDROCHLORIDE
     Dosage: 75 MG

REACTIONS (12)
  - Ectopic pregnancy [Recovering/Resolving]
  - Vaginal haemorrhage [Not Recovered/Not Resolved]
  - Abortion spontaneous [Recovered/Resolved]
  - Nausea [Recovered/Resolved]
  - Fatigue [Recovering/Resolving]
  - Weight increased [Unknown]
  - Polycystic ovaries [Unknown]
  - Condition aggravated [Recovered/Resolved]
  - Anxiety [Recovering/Resolving]
  - Infusion site extravasation [Unknown]
  - Off label use [Unknown]
  - Inappropriate schedule of product administration [Unknown]

NARRATIVE: CASE EVENT DATE: 20220101
